FAERS Safety Report 9002663 (Version 1)
Quarter: 2013Q1

REPORT INFORMATION
  Report Type: Spontaneous
  Country: US (occurrence: US)
  Receive Date: 20130107
  Receipt Date: 20130107
  Transmission Date: 20140127
  Serious: Yes (Other)
  Sender: FDA-Public Use
  Company Number: US-PFIZER INC-2013005633

PATIENT
  Sex: Female

DRUGS (1)
  1. ADVIL [Suspect]
     Indication: INFLUENZA
     Dosage: UNK

REACTIONS (1)
  - Haemorrhage urinary tract [Unknown]
